FAERS Safety Report 25318099 (Version 1)
Quarter: 2025Q2

REPORT INFORMATION
  Report Type: Spontaneous
  Country: US (occurrence: US)
  Receive Date: 20250515
  Receipt Date: 20250515
  Transmission Date: 20250717
  Serious: No
  Sender: INNOGENIX, LLC
  Company Number: US-Innogenix, LLC-2176708

PATIENT

DRUGS (2)
  1. METRONIDAZOLE [Suspect]
     Active Substance: METRONIDAZOLE
     Indication: Product used for unknown indication
  2. XIFAXAN [Concomitant]
     Active Substance: RIFAXIMIN

REACTIONS (1)
  - Drug ineffective [Unknown]
